FAERS Safety Report 11841723 (Version 1)
Quarter: 2015Q4

REPORT INFORMATION
  Report Type: Spontaneous
  Country: US (occurrence: None)
  Receive Date: 20151215
  Receipt Date: 20151215
  Transmission Date: 20160305
  Serious: Yes (Other)
  Sender: FDA-Public Use
  Company Number: 002026786A

PATIENT
  Age: 12 Year
  Sex: Female

DRUGS (5)
  1. PROACTIV REFINING MASK [Suspect]
     Active Substance: SULFUR
     Indication: ACNE
     Dosage: DERMAL BID-QD
     Dates: start: 20150805, end: 20150819
  2. PROACTIV REPAIRING TREATMENT [Suspect]
     Active Substance: BENZOYL PEROXIDE
     Indication: ACNE
     Dosage: DERMAL BID-QD
     Route: 061
     Dates: start: 20150805, end: 20150819
  3. PROACTIV RENEWING CLEANSER [Suspect]
     Active Substance: BENZOYL PEROXIDE
     Indication: ACNE
     Dosage: DERMAL BID-QD
     Route: 061
     Dates: start: 20150805, end: 20150819
  4. ZYRTEC [Concomitant]
     Active Substance: CETIRIZINE HYDROCHLORIDE
  5. EPIPEN PRN [Concomitant]

REACTIONS (3)
  - Rash [None]
  - Dry skin [None]
  - Skin exfoliation [None]

NARRATIVE: CASE EVENT DATE: 20150819
